FAERS Safety Report 18083690 (Version 6)
Quarter: 2020Q4

REPORT INFORMATION
  Report Type: Spontaneous
  Country: CZ (occurrence: CZ)
  Receive Date: 20200729
  Receipt Date: 20201130
  Transmission Date: 20210113
  Serious: Yes (Life-Threatening, Hospitalization, Other)
  Sender: FDA-Public Use
  Company Number: CZ-AUROBINDO-AUR-APL-2020-034147

PATIENT
  Age: 74 Year
  Sex: Male

DRUGS (16)
  1. ROSUVASTATIN. [Suspect]
     Active Substance: ROSUVASTATIN
     Indication: PRODUCT USED FOR UNKNOWN INDICATION
     Dosage: UNK, TOTAL DOSE OF 120 MG
     Route: 065
  2. ROSUVASTATIN. [Interacting]
     Active Substance: ROSUVASTATIN
     Dosage: 120 MILLIGRAM, DAILY
     Route: 065
  3. ROSUCARD [Interacting]
     Active Substance: ROSUVASTATIN CALCIUM
     Indication: PRODUCT USED FOR UNKNOWN INDICATION
     Dosage: 120 MILLIGRAM, ONCE A DAY
     Route: 065
  4. RILMENIDINE [Concomitant]
     Active Substance: RILMENIDINE
     Indication: PRODUCT USED FOR UNKNOWN INDICATION
     Dosage: 1 MILLIGRAM, ONCE A DAY
     Route: 065
  5. WARFARIN [Interacting]
     Active Substance: WARFARIN
     Indication: PRODUCT USED FOR UNKNOWN INDICATION
     Dosage: 3 MILLIGRAM/KILOGRAM, ONCE A DAY
     Route: 065
  6. WARFARIN [Interacting]
     Active Substance: WARFARIN
     Dosage: 3 MILLIGRAM, ONCE A DAY
     Route: 065
  7. INSULIN LISPRO [Concomitant]
     Active Substance: INSULIN LISPRO
     Indication: PRODUCT USED FOR UNKNOWN INDICATION
     Dosage: 42 INTERNATIONAL UNIT, ONCE A DAY
     Route: 065
  8. ROSUMOP [Interacting]
     Active Substance: ROSUVASTATIN CALCIUM
     Indication: PRODUCT USED FOR UNKNOWN INDICATION
     Dosage: 120 MILLIGRAM, ONCE A DAY
     Route: 065
  9. TAMSULOSIN [Concomitant]
     Active Substance: TAMSULOSIN
     Indication: PRODUCT USED FOR UNKNOWN INDICATION
     Dosage: 0.4 MILLIGRAM, DAILY
     Route: 065
  10. ROSUVASTATIN. [Interacting]
     Active Substance: ROSUVASTATIN
     Dosage: UNK, TOTAL DOSE OF 120 MG
     Route: 065
  11. SOLIFENACIN [Concomitant]
     Active Substance: SOLIFENACIN
     Indication: PRODUCT USED FOR UNKNOWN INDICATION
     Dosage: 5 MILLIGRAM, ONCE A DAY
     Route: 065
  12. FINASTERIDE. [Concomitant]
     Active Substance: FINASTERIDE
     Indication: PRODUCT USED FOR UNKNOWN INDICATION
     Dosage: 5 MILLIGRAM, ONCE A DAY
     Route: 048
  13. INSULIN GLARGINE [Concomitant]
     Active Substance: INSULIN GLARGINE
     Indication: PRODUCT USED FOR UNKNOWN INDICATION
     Dosage: 44 INTERNATIONAL UNIT, ONCE A DAY
     Route: 065
  14. ROSUVASTATIN. [Interacting]
     Active Substance: ROSUVASTATIN
     Dosage: 40 MILLIGRAM, ONCE A DAY
     Route: 065
  15. ROSUVASTATIN. [Interacting]
     Active Substance: ROSUVASTATIN
     Dosage: UNK, ONCE A DAY, (MISTAKENLY CO-ADMINISTERED 3 ROSUVASTATIN)
     Route: 065
  16. SOLIFENACIN [Concomitant]
     Active Substance: SOLIFENACIN
     Dosage: 10 MILLIGRAM, ONCE A DAY
     Route: 065

REACTIONS (30)
  - Acute kidney injury [Recovered/Resolved]
  - Myoglobin blood increased [Recovered/Resolved]
  - Alanine aminotransferase increased [Recovered/Resolved]
  - Aspartate aminotransferase increased [Recovered/Resolved]
  - Fatigue [Recovered/Resolved]
  - Mobility decreased [Recovered/Resolved]
  - Contraindicated product administered [Recovered/Resolved]
  - Incorrect dose administered [Unknown]
  - Polyuria [Unknown]
  - Blood creatinine increased [Recovered/Resolved]
  - Urinary incontinence [Recovered/Resolved]
  - Product administration error [Unknown]
  - Constipation [Recovered/Resolved]
  - Rhabdomyolysis [Recovered/Resolved]
  - Blood urea increased [Recovering/Resolving]
  - Overdose [Recovered/Resolved]
  - Transaminases increased [Recovering/Resolving]
  - Drug interaction [Recovered/Resolved]
  - Bedridden [Recovering/Resolving]
  - Product name confusion [Unknown]
  - Immobile [Unknown]
  - International normalised ratio increased [Recovered/Resolved]
  - Asthenia [Recovered/Resolved]
  - Myalgia [Recovered/Resolved]
  - Dehydration [Recovered/Resolved]
  - Oedema peripheral [Recovered/Resolved]
  - Medication error [Recovered/Resolved]
  - Drug clearance decreased [Recovering/Resolving]
  - Blood creatine phosphokinase increased [Recovered/Resolved]
  - Toxicity to various agents [Unknown]
